FAERS Safety Report 6855918-7 (Version None)
Quarter: 2010Q3

REPORT INFORMATION
  Report Type: 
  Country: None (occurrence: None)
  Receive Date: 20100716
  Receipt Date: 20100716
  Transmission Date: 20110219
  Serious: Yes (Other)
  Sender: FDA-Public Use
  Company Number: None

PATIENT
  Age: 67 Year
  Sex: Female
  Weight: 95.2554 kg

DRUGS (1)
  1. AMBIEN [Suspect]
     Dates: start: 20091221, end: 20091221

REACTIONS (1)
  - HALLUCINATION [None]
